FAERS Safety Report 9444924 (Version 1)
Quarter: 2013Q3

REPORT INFORMATION
  Report Type: Spontaneous
  Country: DE (occurrence: DE)
  Receive Date: 20130807
  Receipt Date: 20130807
  Transmission Date: 20140515
  Serious: Yes (Hospitalization)
  Sender: FDA-Public Use
  Company Number: GXKR2013DE002599

PATIENT
  Sex: 0

DRUGS (1)
  1. VENLAFAXINE [Suspect]
     Dosage: MATERNAL DOSE: 75 MG/DAY
     Route: 048

REACTIONS (4)
  - Depression [Unknown]
  - Muscle spasticity [Unknown]
  - Bradycardia neonatal [Unknown]
  - Respiratory gas exchange disorder [Unknown]
